FAERS Safety Report 5029325-6 (Version None)
Quarter: 2006Q2

REPORT INFORMATION
  Report Type: 
  Country: None (occurrence: None)
  Receive Date: 20060615
  Receipt Date: 20060615
  Transmission Date: 20061013
  Serious: No
  Sender: FDA-Public Use
  Company Number: None

PATIENT
  Sex: Female
  Weight: 107.0489 kg

DRUGS (2)
  1. DIOVAN [Suspect]
     Indication: PROPHYLAXIS
  2. COZAAR [Suspect]
     Indication: PROPHYLAXIS
     Dosage: 25 MG ONCE DAILY BY MOUTH
     Dates: start: 20060420, end: 20060430

REACTIONS (3)
  - DRUG INTOLERANCE [None]
  - FEELING ABNORMAL [None]
  - FEELING JITTERY [None]
